FAERS Safety Report 17889419 (Version 2)
Quarter: 2020Q2

REPORT INFORMATION
  Report Type: Spontaneous
  Country: US (occurrence: US)
  Receive Date: 20200612
  Receipt Date: 20200618
  Transmission Date: 20200714
  Serious: No
  Sender: FDA-Public Use
  Company Number: US-PFIZER INC-2019254577

PATIENT
  Age: 66 Year
  Sex: Male

DRUGS (2)
  1. LYRICA [Suspect]
     Active Substance: PREGABALIN
     Dosage: 200 MG, 3X/DAY
  2. LYRICA [Suspect]
     Active Substance: PREGABALIN
     Indication: CONGENITAL NEUROPATHY
     Dosage: 100 MG, 3X/DAY
     Route: 048

REACTIONS (5)
  - Product use in unapproved indication [Unknown]
  - Malaise [Unknown]
  - Off label use [Unknown]
  - Pain in extremity [Unknown]
  - Peripheral swelling [Unknown]
